FAERS Safety Report 8846717 (Version 2)
Quarter: 2012Q4

REPORT INFORMATION
  Report Type: 
  Country: US (occurrence: US)
  Receive Date: 20121017
  Receipt Date: 20121030
  Transmission Date: 20130627
  Serious: No
  Sender: FDA-Public Use
  Company Number: US-ASTRAZENECA-2012SE72432

PATIENT
  Age: 71 Year
  Sex: Female

DRUGS (15)
  1. SEROQUEL [Suspect]
     Route: 048
  2. CAPRELSA [Suspect]
     Route: 048
     Dates: start: 20120807
  3. ABILIFY [Concomitant]
  4. ATIVAN [Concomitant]
  5. BUSOIRONE HCL [Concomitant]
  6. EVISTA [Concomitant]
  7. KLOR-CON [Concomitant]
  8. METFORMIN [Concomitant]
  9. OXYCODONE [Concomitant]
  10. SYNTHROID [Concomitant]
  11. TRICOR [Concomitant]
  12. VENLAFAXINE [Concomitant]
  13. ZANTAC [Concomitant]
  14. GABAPENTIN [Concomitant]
  15. LASIX [Concomitant]

REACTIONS (3)
  - Acne [Unknown]
  - Glossodynia [Unknown]
  - Fatigue [Unknown]
